FAERS Safety Report 5706320-2 (Version None)
Quarter: 2008Q2

REPORT INFORMATION
  Report Type: 
  Country: None (occurrence: None)
  Receive Date: 20080328
  Receipt Date: 20070403
  Transmission Date: 20081010
  Serious: Yes (Other)
  Sender: FDA-Public Use
  Company Number: HQWYE738305APR07

PATIENT
  Age: 58 Year
  Sex: Female
  Weight: 56.75 kg

DRUGS (4)
  1. ALAVERT [Suspect]
     Indication: EYE PRURITUS
     Dosage: 1 TABLET 1X PER 1 DAY, ORAL
     Route: 048
     Dates: start: 20070401, end: 20070401
  2. ALAVERT [Suspect]
     Indication: HEADACHE
     Dosage: 1 TABLET 1X PER 1 DAY, ORAL
     Route: 048
     Dates: start: 20070401, end: 20070401
  3. VYTORIN [Concomitant]
  4. FOSAMAX [Concomitant]

REACTIONS (1)
  - INSOMNIA [None]
